FAERS Safety Report 11912409 (Version 1)
Quarter: 2016Q1

REPORT INFORMATION
  Report Type: Spontaneous
  Country: PH (occurrence: PH)
  Receive Date: 20160113
  Receipt Date: 20160113
  Transmission Date: 20160526
  Serious: Yes (Hospitalization)
  Sender: FDA-Public Use
  Company Number: PH-009507513-1601PHL002205

PATIENT
  Age: 23 Year
  Sex: Male

DRUGS (1)
  1. COZAAR [Suspect]
     Active Substance: LOSARTAN POTASSIUM
     Indication: HYPERTENSION
     Dosage: ONE TABLET, ONCE A DAY
     Route: 048

REACTIONS (1)
  - Inguinal hernia repair [Recovered/Resolved]

NARRATIVE: CASE EVENT DATE: 201408
